FAERS Safety Report 7443836-5 (Version None)
Quarter: 2011Q2

REPORT INFORMATION
  Report Type: 
  Country: None (occurrence: None)
  Receive Date: 20110428
  Receipt Date: 20090312
  Transmission Date: 20111010
  Serious: Yes (Hospitalization, Other)
  Sender: FDA-Public Use
  Company Number: DE-GENENTECH-317552

PATIENT
  Age: 79 Year

DRUGS (1)
  1. LUCENTIS [Suspect]
     Indication: MACULAR DEGENERATION
     Dosage: UNK
     Route: 031
     Dates: start: 20090107

REACTIONS (5)
  - EYE PAIN [None]
  - MENISCUS LESION [None]
  - GASTRIC DISORDER [None]
  - VISUAL ACUITY REDUCED [None]
  - CATARACT [None]
